FAERS Safety Report 8300866-9 (Version None)
Quarter: 2012Q2

REPORT INFORMATION
  Report Type: 
  Country: None (occurrence: None)
  Receive Date: 20120420
  Receipt Date: 20120418
  Transmission Date: 20120825
  Serious: Yes (Life-Threatening, Hospitalization)
  Sender: FDA-Public Use
  Company Number: DK-GENZYME-CAMP-1002117

PATIENT
  Age: 41 Year
  Sex: Male

DRUGS (10)
  1. TRIMETHOPRIM [Concomitant]
     Indication: PROPHYLAXIS
     Dosage: UNK
     Route: 065
  2. CYCLOPHOSPHAMIDE [Suspect]
     Indication: T-CELL LYMPHOMA
     Dosage: 1.6 G, ONCE DAY 1
     Route: 042
     Dates: start: 20111223, end: 20120124
  3. DOXORUBICIN HCL [Suspect]
     Indication: T-CELL LYMPHOMA
     Dosage: 105 MG, ONCE DAY 1
     Route: 042
     Dates: start: 20111223, end: 20120124
  4. VINCRISTINE [Suspect]
     Indication: T-CELL LYMPHOMA
     Dosage: 2 MG, ONCE DAY 1
     Route: 042
     Dates: start: 20111223, end: 20120124
  5. PREDNISONE TAB [Suspect]
     Indication: T-CELL LYMPHOMA
     Dosage: 100 MG, QD 5X DAY 1-5
     Route: 048
     Dates: start: 20111223, end: 20120124
  6. PEGFILGRASTIM [Suspect]
     Indication: T-CELL LYMPHOMA
     Dosage: 6 MG, ONCE DAY 4
     Route: 058
     Dates: start: 20111226, end: 20120127
  7. FLUCONAZOLE [Concomitant]
     Indication: PROPHYLAXIS
     Dosage: UNK
     Route: 065
  8. SULFAMETIZOL [Concomitant]
     Indication: PROPHYLAXIS
     Dosage: UNK
     Route: 065
  9. CAMPATH [Suspect]
     Indication: T-CELL LYMPHOMA
     Dosage: 30 MG, ONCE DAY 1
     Route: 058
     Dates: start: 20111223, end: 20120124
  10. VALACICLOVIR [Concomitant]
     Indication: PROPHYLAXIS
     Dosage: UNK
     Route: 065

REACTIONS (3)
  - T-CELL LYMPHOMA RECURRENT [None]
  - HISTIOCYTOSIS HAEMATOPHAGIC [None]
  - NEUTROPENIA [None]
